FAERS Safety Report 25956643 (Version 1)
Quarter: 2025Q4

REPORT INFORMATION
  Report Type: Spontaneous
  Country: US (occurrence: US)
  Receive Date: 20251024
  Receipt Date: 20251024
  Transmission Date: 20260117
  Serious: Yes (Hospitalization)
  Sender: GRIFOLS
  Company Number: US-IGSA-BIG0038921

PATIENT
  Age: 68 Year
  Sex: Female
  Weight: 59.86 kg

DRUGS (23)
  1. PROLASTIN-C LIQUID [Suspect]
     Active Substance: .ALPHA.1-PROTEINASE INHIBITOR HUMAN
     Indication: Alpha-1 antitrypsin deficiency
     Dosage: 4016 MILLIGRAM, Q.WK.
     Route: 042
  2. OXYGEN [Concomitant]
     Active Substance: OXYGEN
  3. VERAPAMIL [Concomitant]
     Active Substance: VERAPAMIL HYDROCHLORIDE
     Dosage: 120 MILLIGRAM
     Route: 048
  4. DIPHENHYDRAMINE HYDROCHLORIDE [Concomitant]
     Active Substance: DIPHENHYDRAMINE HYDROCHLORIDE
  5. EPINEPHRINE [Concomitant]
     Active Substance: EPINEPHRINE
  6. LIDOCAINE [Concomitant]
     Active Substance: LIDOCAINE
  7. SODIUM CHLORIDE [Concomitant]
     Active Substance: SODIUM CHLORIDE
  8. LISINOPRIL [Concomitant]
     Active Substance: LISINOPRIL
     Dosage: 20 MILLIGRAM
     Route: 048
  9. GUANFACINE HYDROCHLORIDE [Concomitant]
     Active Substance: GUANFACINE HYDROCHLORIDE
     Dosage: 2 MILLIGRAM
     Route: 048
  10. HERBALS\WITHANIA SOMNIFERA ROOT [Concomitant]
     Active Substance: HERBALS\WITHANIA SOMNIFERA ROOT
     Dosage: 300 MILLIGRAM
     Route: 048
  11. SINGULAIR [Concomitant]
     Active Substance: MONTELUKAST SODIUM
     Dosage: 4 MILLIGRAM
  12. BREZTRI AEROSPHERE [BUDESONIDE;FORMOTEROL FUMARATE DIHYDRATE;GLYCOPYRR [Concomitant]
  13. ALBUTEROL SULFATE [Concomitant]
     Active Substance: ALBUTEROL SULFATE
  14. CYMBALTA [Concomitant]
     Active Substance: DULOXETINE HYDROCHLORIDE
     Dosage: 60 MILLIGRAM
     Route: 048
  15. SODIUM CHLORIDE [Concomitant]
     Active Substance: SODIUM CHLORIDE
  16. VITAMIN D3 [Concomitant]
     Active Substance: CHOLECALCIFEROL
     Dosage: 50 MICROGRAM
     Route: 048
  17. VITAMIN B COMPLEX [Concomitant]
     Active Substance: CYANOCOBALAMIN\DEXPANTHENOL\NIACINAMIDE\PYRIDOXINE HYDROCHLORIDE\RIBOFLAVIN 5^-PHOSPHATE SODIUM\THIA
  18. MAGNESIUM [Concomitant]
     Active Substance: MAGNESIUM
     Dosage: 500 MILLIGRAM
     Route: 048
  19. OMEGA-3 FATTY ACIDS [Concomitant]
     Active Substance: OMEGA-3 FATTY ACIDS
     Dosage: 10000 MILLIGRAM
     Route: 048
  20. ACETYLCYSTEINE [Concomitant]
     Active Substance: ACETYLCYSTEINE
     Dosage: 600 MILLIGRAM
     Route: 048
  21. VITAMIN C [Concomitant]
     Active Substance: ASCORBIC ACID
     Dosage: 1000 MILLIGRAM
     Route: 048
  22. CLARITINE ALLERGY [Concomitant]
     Dosage: 10 MILLIGRAM
     Route: 048
  23. PRILOSEC OTC [Concomitant]
     Active Substance: OMEPRAZOLE MAGNESIUM
     Dosage: 20 MILLIGRAM
     Route: 048

REACTIONS (2)
  - Lung disorder [Unknown]
  - Dyspnoea [Unknown]

NARRATIVE: CASE EVENT DATE: 20251011
